FAERS Safety Report 7769053-7 (Version None)
Quarter: 2011Q3

REPORT INFORMATION
  Report Type: 
  Country: None (occurrence: None)
  Receive Date: 20110922
  Receipt Date: 20101207
  Transmission Date: 20111222
  Serious: No
  Sender: FDA-Public Use
  Company Number: US-ASTRAZENECA-2010SE58028

PATIENT
  Age: 30 Year
  Sex: Male
  Weight: 148.3 kg

DRUGS (7)
  1. SEROQUEL XR [Suspect]
     Indication: DEPRESSION
     Route: 048
     Dates: start: 20101101, end: 20101202
  2. SEROQUEL XR [Suspect]
     Indication: ANXIETY
     Route: 048
     Dates: start: 20101101, end: 20101202
  3. SEROQUEL XR [Suspect]
     Route: 048
     Dates: start: 20101202, end: 20101203
  4. SEROQUEL XR [Suspect]
     Route: 048
     Dates: start: 20101202, end: 20101203
  5. ABILIFY [Concomitant]
  6. AMOXICILLIN [Concomitant]
  7. LAMICTAL [Concomitant]

REACTIONS (8)
  - NAUSEA [None]
  - ORGASM ABNORMAL [None]
  - TREMOR [None]
  - SLEEP TERROR [None]
  - LOWER RESPIRATORY TRACT INFECTION [None]
  - POOR QUALITY SLEEP [None]
  - RASH [None]
  - HOT FLUSH [None]
